FAERS Safety Report 15734372 (Version 1)
Quarter: 2018Q4

REPORT INFORMATION
  Report Type: Report from Study
  Country: JP (occurrence: JP)
  Receive Date: 20181218
  Receipt Date: 20181218
  Transmission Date: 20190205
  Serious: Yes (Death, Life-Threatening, Hospitalization, Other)
  Sender: FDA-Public Use
  Company Number: JP-VIIV HEALTHCARE LIMITED-JP2018JPN226113

PATIENT
  Sex: Female

DRUGS (70)
  1. CRAVIT [Suspect]
     Active Substance: LEVOFLOXACIN
     Dosage: UNK
     Route: 041
     Dates: start: 20170810, end: 20170814
  2. DESCOVY [Suspect]
     Active Substance: EMTRICITABINE\TENOFOVIR ALAFENAMIDE FUMARATE
     Dosage: 1 DF, 1D
     Route: 048
     Dates: start: 20170822, end: 20170908
  3. DAIPHEN COMBINATION TABLETS [Concomitant]
     Dosage: UNK
     Dates: start: 20170811, end: 20170816
  4. ONDANSETRON HYDROCHLORIDE HYDRATE [Concomitant]
     Dosage: UNK
     Dates: start: 20170710, end: 20170710
  5. DIPRIVAN INJECTION [Concomitant]
     Indication: PROPHYLAXIS
     Dosage: UNK
     Dates: start: 20170714, end: 20171004
  6. PITRESSIN (VASOPRESSIN) [Concomitant]
     Dosage: UNK
     Dates: start: 20170712, end: 20170715
  7. MIYA-BM FINE GRANULES [Concomitant]
     Indication: PROPHYLAXIS
     Dosage: UNK
     Dates: start: 20170719, end: 20170904
  8. FUROSEMIDE. [Concomitant]
     Active Substance: FUROSEMIDE
     Dosage: UNK
     Dates: start: 20170707, end: 20170711
  9. PRECEDEX [Concomitant]
     Active Substance: DEXMEDETOMIDINE HYDROCHLORIDE
     Dosage: UNK
     Dates: start: 20170911, end: 20171002
  10. SODIUM PHOSPHATE CORRECTIVE INJECTION [Concomitant]
     Dosage: UNK
     Dates: start: 20170828, end: 20170828
  11. TAZOPIPE COMBINATION INTRAVENOUS INJECTION [Suspect]
     Active Substance: PIPERACILLIN SODIUM\TAZOBACTAM SODIUM
     Dosage: UNK
     Route: 042
     Dates: start: 20170709, end: 20170810
  12. TEICOPLANIN INJECTON [Suspect]
     Active Substance: TEICOPLANIN
     Dosage: UNK
     Route: 041
     Dates: start: 20170901, end: 20170906
  13. DAIPHEN COMBINATION TABLETS [Concomitant]
     Dosage: UNK
     Dates: start: 20170706, end: 20170712
  14. GASTER INJECTION [Concomitant]
     Indication: PROPHYLAXIS
     Dosage: UNK
     Dates: start: 20170916, end: 20171010
  15. FAMOTIDINE. [Concomitant]
     Active Substance: FAMOTIDINE
     Indication: PROPHYLAXIS
     Dosage: UNK
     Dates: start: 20170905, end: 20170911
  16. FUROSEMIDE. [Concomitant]
     Active Substance: FUROSEMIDE
     Dosage: UNK
     Dates: start: 20170924, end: 20170924
  17. PRECEDEX [Concomitant]
     Active Substance: DEXMEDETOMIDINE HYDROCHLORIDE
     Indication: PROPHYLAXIS
     Dosage: UNK
     Dates: start: 20170712, end: 20170717
  18. PRECEDEX [Concomitant]
     Active Substance: DEXMEDETOMIDINE HYDROCHLORIDE
     Dosage: UNK
     Dates: start: 20170813, end: 20170815
  19. SODIUM PHOSPHATE CORRECTIVE INJECTION [Concomitant]
     Dosage: UNK
     Dates: start: 20170928, end: 20170930
  20. FLUCONAZOLE. [Suspect]
     Active Substance: FLUCONAZOLE
     Dosage: UNK
     Route: 042
     Dates: start: 20170912, end: 20170914
  21. TAZOPIPE COMBINATION INTRAVENOUS INJECTION [Suspect]
     Active Substance: PIPERACILLIN SODIUM\TAZOBACTAM SODIUM
     Dosage: UNK
     Route: 042
     Dates: start: 20170824, end: 20170915
  22. PROPOFOL. [Concomitant]
     Active Substance: PROPOFOL
     Indication: PROPHYLAXIS
     Dosage: UNK
     Dates: start: 20170705, end: 20170712
  23. DOBUPUM INJECTION [Concomitant]
     Dosage: UNK
     Dates: start: 20170713, end: 20170718
  24. FENTANYL CITRATE INJECTION [Concomitant]
     Active Substance: FENTANYL CITRATE
     Indication: PROPHYLAXIS
     Dosage: UNK
     Dates: start: 20170705, end: 20171004
  25. FUROSEMIDE. [Concomitant]
     Active Substance: FUROSEMIDE
     Dosage: UNK
     Dates: start: 20170809, end: 20170809
  26. HEPARIN SODIUM INJECTION [Concomitant]
     Active Substance: HEPARIN SODIUM
     Dosage: UNK
     Dates: start: 20170817, end: 20170824
  27. SODIUM PHOSPHATE CORRECTIVE INJECTION [Concomitant]
     Dosage: UNK
     Dates: start: 20170810, end: 20170810
  28. CRAVIT [Suspect]
     Active Substance: LEVOFLOXACIN
     Dosage: UNK
     Route: 048
     Dates: start: 20170830, end: 20170904
  29. CRAVIT [Suspect]
     Active Substance: LEVOFLOXACIN
     Dosage: UNK
     Route: 041
     Dates: start: 20170822, end: 20170824
  30. FLUCONAZOLE. [Suspect]
     Active Substance: FLUCONAZOLE
     Dosage: UNK
     Route: 048
     Dates: start: 20170912, end: 20170919
  31. GENVOYA [Concomitant]
     Active Substance: COBICISTAT\ELVITEGRAVIR\EMTRICITABINE\TENOFOVIR ALAFENAMIDE FUMARATE
     Indication: HIV INFECTION
     Dosage: 1 DF, 1D
     Dates: start: 20170811, end: 20170822
  32. ONDANSETRON HYDROCHLORIDE HYDRATE [Concomitant]
     Dosage: UNK
     Dates: start: 20170718, end: 20170718
  33. AMBROXOL HYDROCHLORIDE SYRUP [Concomitant]
     Indication: PROPHYLAXIS
     Dosage: UNK
     Dates: start: 20170726, end: 20170907
  34. FUROSEMIDE. [Concomitant]
     Active Substance: FUROSEMIDE
     Dosage: UNK
     Dates: start: 20170730, end: 20170804
  35. FUROSEMIDE. [Concomitant]
     Active Substance: FUROSEMIDE
     Dosage: UNK
     Dates: start: 20170904, end: 20170904
  36. CARBAZOCHROME SULFONATE NA [Concomitant]
     Indication: PROPHYLAXIS
     Dosage: UNK
     Dates: start: 20170704, end: 20170709
  37. DESCOVY [Suspect]
     Active Substance: EMTRICITABINE\TENOFOVIR ALAFENAMIDE FUMARATE
     Indication: HIV INFECTION
     Dosage: 1 DF, 1D
     Route: 048
     Dates: start: 20170714, end: 20170810
  38. TEICOPLANIN INJECTON [Suspect]
     Active Substance: TEICOPLANIN
     Dosage: UNK
     Route: 041
     Dates: start: 20170822, end: 20170823
  39. DAIPHEN COMBINATION TABLETS [Concomitant]
     Dosage: UNK
     Dates: start: 20170822, end: 20170824
  40. ONDANSETRON HYDROCHLORIDE HYDRATE [Concomitant]
     Dosage: UNK
     Dates: start: 20170802, end: 20170802
  41. ONDANSETRON HYDROCHLORIDE HYDRATE [Concomitant]
     Dosage: UNK
     Dates: start: 20170925, end: 20170925
  42. PANTOL INJECTION (DEXPANTHENOL) [Concomitant]
     Indication: PROPHYLAXIS
     Dosage: UNK
     Dates: start: 20170716, end: 20170809
  43. HEPARIN SODIUM INJECTION [Concomitant]
     Active Substance: HEPARIN SODIUM
     Indication: PROPHYLAXIS
     Dosage: UNK
     Dates: start: 20170712, end: 20170810
  44. HEPARIN SODIUM INJECTION [Concomitant]
     Active Substance: HEPARIN SODIUM
     Dosage: UNK
     Dates: start: 20170908, end: 20171003
  45. SODIUM PHOSPHATE CORRECTIVE INJECTION [Concomitant]
     Indication: PROPHYLAXIS
     Dosage: UNK
     Dates: start: 20170719, end: 20170721
  46. FLUCONAZOLE. [Suspect]
     Active Substance: FLUCONAZOLE
     Dosage: UNK
     Route: 048
     Dates: start: 20170905, end: 20170907
  47. TEICOPLANIN INJECTON [Suspect]
     Active Substance: TEICOPLANIN
     Dosage: UNK
     Route: 041
     Dates: start: 20170712, end: 20170717
  48. FUNGUARD INFUSION [Suspect]
     Active Substance: MICAFUNGIN SODIUM
     Dosage: UNK
     Route: 041
     Dates: start: 20170903, end: 20170905
  49. ONDANSETRON HYDROCHLORIDE HYDRATE [Concomitant]
     Dosage: UNK
     Dates: start: 20170725, end: 20170725
  50. FUROSEMIDE. [Concomitant]
     Active Substance: FUROSEMIDE
     Dosage: UNK
     Dates: start: 20170716, end: 20170724
  51. SODIUM PHOSPHATE CORRECTIVE INJECTION [Concomitant]
     Dosage: UNK
     Dates: start: 20170831, end: 20170907
  52. TEICOPLANIN INJECTON [Suspect]
     Active Substance: TEICOPLANIN
     Dosage: UNK
     Route: 041
     Dates: start: 20170912, end: 20170913
  53. CARBOCISTEINE SYRUP [Concomitant]
     Indication: PROPHYLAXIS
     Dosage: UNK
     Dates: start: 20170726, end: 20170904
  54. CEFTRIAXONE SODIUM FOR INJECTION [Concomitant]
     Dosage: UNK
     Dates: start: 20170704, end: 20170710
  55. OMEPRAZOLE INJECTION [Concomitant]
     Indication: PROPHYLAXIS
     Dosage: UNK
     Dates: start: 20171010, end: 20171010
  56. NORADRENALINE INJECTION [Concomitant]
     Dosage: UNK
     Dates: start: 20170705
  57. FUROSEMIDE. [Concomitant]
     Active Substance: FUROSEMIDE
     Dosage: UNK
     Dates: start: 20170812, end: 20170812
  58. FUROSEMIDE. [Concomitant]
     Active Substance: FUROSEMIDE
     Dosage: UNK
     Dates: start: 20170908, end: 20170908
  59. SODIUM PHOSPHATE CORRECTIVE INJECTION [Concomitant]
     Dosage: UNK
     Dates: start: 20170921, end: 20170921
  60. DOLUTEGRAVIR [Suspect]
     Active Substance: DOLUTEGRAVIR
     Indication: HIV INFECTION
     Dosage: 50 MG, 1D
     Route: 048
     Dates: start: 20170714, end: 20170810
  61. DOLUTEGRAVIR [Suspect]
     Active Substance: DOLUTEGRAVIR
     Dosage: 50 MG, 1D
     Route: 048
     Dates: start: 20170822, end: 20170908
  62. DOLUTEGRAVIR [Suspect]
     Active Substance: DOLUTEGRAVIR
     Dosage: 100 MG, 1D
     Route: 048
     Dates: start: 20170920, end: 20171005
  63. CRAVIT [Suspect]
     Active Substance: LEVOFLOXACIN
     Dosage: UNK
     Route: 048
     Dates: start: 20170815, end: 20170816
  64. NEXIUM CAPSULE [Concomitant]
     Indication: PROPHYLAXIS
     Dosage: UNK
     Dates: start: 20170706, end: 20170904
  65. BIOFERMIN R (JAPAN) [Concomitant]
     Indication: PROPHYLAXIS
     Dosage: UNK
     Dates: start: 20170719, end: 20170904
  66. ONDANSETRON HYDROCHLORIDE HYDRATE [Concomitant]
     Indication: PROPHYLAXIS
     Dosage: UNK
     Dates: start: 20170703, end: 20170703
  67. ONDANSETRON HYDROCHLORIDE HYDRATE [Concomitant]
     Dosage: UNK
     Dates: start: 20170907, end: 20170907
  68. ONDANSETRON HYDROCHLORIDE HYDRATE [Concomitant]
     Dosage: UNK
     Dates: start: 20170915, end: 20170915
  69. PANTOL INJECTION (DEXPANTHENOL) [Concomitant]
     Dosage: UNK
     Dates: start: 20170912, end: 20171005
  70. SODIUM PHOSPHATE CORRECTIVE INJECTION [Concomitant]
     Dosage: UNK
     Dates: start: 20170917, end: 20170917

REACTIONS (6)
  - Pseudomonas infection [Not Recovered/Not Resolved]
  - Cerebral haemorrhage [Fatal]
  - Diarrhoea [Recovered/Resolved]
  - Renal impairment [Not Recovered/Not Resolved]
  - Organising pneumonia [Not Recovered/Not Resolved]
  - Kaposi^s sarcoma [Recovering/Resolving]

NARRATIVE: CASE EVENT DATE: 201705
